FAERS Safety Report 11141379 (Version 1)
Quarter: 2015Q2

REPORT INFORMATION
  Report Type: Spontaneous
  Country: US (occurrence: US)
  Receive Date: 20150525
  Receipt Date: 20150525
  Transmission Date: 20150821
  Serious: No
  Sender: FDA-Public Use
  Company Number: US-JNJFOC-20121211070

PATIENT
  Sex: Female
  Weight: 60.78 kg

DRUGS (4)
  1. CRESTOR [Concomitant]
     Active Substance: ROSUVASTATIN CALCIUM
     Indication: BLOOD CHOLESTEROL
     Dosage: 1 MG/HALF TABLET AS NEEDED
     Route: 048
  2. CLONOPIN [Concomitant]
     Active Substance: CLONAZEPAM
     Indication: ANXIETY
     Dosage: 1 MG TABLET (1 IN THE MORNING AND 1 IN THE EVENING), SINCE 2 YEARS
     Route: 048
  3. RISPERIDONE. [Suspect]
     Active Substance: RISPERIDONE
     Indication: PRODUCT USED FOR UNKNOWN INDICATION
     Dosage: 1 AT BEDTIME
     Route: 048
     Dates: start: 20121208
  4. CYMBALTA [Concomitant]
     Active Substance: DULOXETINE HYDROCHLORIDE
     Indication: DEPRESSION
     Dosage: 60 MG TABLET/ 2 IN THE MORNING, SINCE 2 YEARS
     Route: 048

REACTIONS (5)
  - Anxiety [Unknown]
  - Agitation [Recovered/Resolved]
  - Nervousness [Recovering/Resolving]
  - Blood cholesterol increased [Recovered/Resolved]
  - Panic attack [Unknown]
